FAERS Safety Report 7251461-4 (Version None)
Quarter: 2011Q1

REPORT INFORMATION
  Report Type: 
  Country: None (occurrence: None)
  Receive Date: 20110128
  Receipt Date: 20110119
  Transmission Date: 20110831
  Serious: Yes (Hospitalization, Other)
  Sender: FDA-Public Use
  Company Number: PHHY2009CA47255

PATIENT
  Sex: Female

DRUGS (5)
  1. SANDOSTATIN LAR [Suspect]
     Indication: METASTATIC CARCINOID TUMOUR
     Dosage: 40 MG, QMO
     Route: 030
     Dates: start: 20061120
  2. ELOCON [Concomitant]
     Dosage: UNK
  3. PREDNISONE [Concomitant]
     Dosage: UNK
  4. UREMOL [Concomitant]
     Dosage: UNK
  5. BENADRYL [Concomitant]
     Dosage: 25 MG, UNK

REACTIONS (6)
  - ERYTHEMA [None]
  - HORDEOLUM [None]
  - ASTHENIA [None]
  - HAEMORRHAGE [None]
  - MUSCULOSKELETAL PAIN [None]
  - GASTRIC ULCER [None]
